FAERS Safety Report 19826888 (Version 1)
Quarter: 2021Q3

REPORT INFORMATION
  Report Type: Spontaneous
  Country: CH (occurrence: CH)
  Receive Date: 20210913
  Receipt Date: 20210913
  Transmission Date: 20211014
  Serious: Yes (Other)
  Sender: FDA-Public Use
  Company Number: CH-MALLINCKRODT PHARMACEUTICALS-T202104055

PATIENT
  Sex: Female

DRUGS (1)
  1. UVADEX [Suspect]
     Active Substance: METHOXSALEN
     Indication: SCLERODERMA
     Dosage: UNK (EXTRACORPOREAL)
     Route: 050

REACTIONS (2)
  - Product use in unapproved indication [Unknown]
  - Anaemia [Recovered/Resolved]

NARRATIVE: CASE EVENT DATE: 2021
